FAERS Safety Report 10588212 (Version 1)
Quarter: 2014Q4

REPORT INFORMATION
  Report Type: Report from Study
  Country: BR (occurrence: BR)
  Receive Date: 20141117
  Receipt Date: 20141117
  Transmission Date: 20150529
  Serious: Yes (Hospitalization, Other)
  Sender: FDA-Public Use
  Company Number: PHHY2014BR149535

PATIENT
  Age: 83 Year
  Sex: Female
  Weight: 57 kg

DRUGS (5)
  1. DEPURA [Concomitant]
     Active Substance: CHOLECALCIFEROL
     Indication: OSTEOPENIA
     Dosage: 10 DRP, QD
     Route: 065
     Dates: start: 2010
  2. ACLASTA [Suspect]
     Active Substance: ZOLEDRONIC ACID
     Indication: OSTEOPENIA
     Dosage: ONCE A YEAR
     Route: 042
     Dates: start: 201311
  3. LORAX                                   /BRA/ [Concomitant]
     Indication: SLEEP DISORDER
  4. LORAX                                   /BRA/ [Concomitant]
     Indication: NERVOUS SYSTEM DISORDER
     Dosage: 1 DF, QD
     Route: 065
     Dates: start: 2006
  5. LAMOTRIGIN [Concomitant]
     Active Substance: LAMOTRIGINE
     Indication: SEIZURE
     Dosage: 1 DF, QD
     Route: 065

REACTIONS (5)
  - Femur fracture [Recovering/Resolving]
  - Intervertebral disc protrusion [Recovering/Resolving]
  - Fall [Recovering/Resolving]
  - Pain in extremity [Recovering/Resolving]
  - Limb injury [Unknown]

NARRATIVE: CASE EVENT DATE: 20140606
